FAERS Safety Report 26124874 (Version 1)
Quarter: 2025Q4

REPORT INFORMATION
  Report Type: Spontaneous
  Country: EU (occurrence: EU)
  Receive Date: 20251205
  Receipt Date: 20251205
  Transmission Date: 20260118
  Serious: Yes (Death, Other)
  Sender: STRIDES
  Company Number: EU-STRIDES ARCOLAB LIMITED-2025SP015030

PATIENT
  Age: 59 Year
  Sex: Male

DRUGS (11)
  1. METRONIDAZOLE [Suspect]
     Active Substance: METRONIDAZOLE
     Indication: Cholecystitis acute
     Dosage: 500 MILLIGRAM, EVERY 6 HRS
     Route: 065
  2. METRONIDAZOLE [Suspect]
     Active Substance: METRONIDAZOLE
     Indication: Liver abscess
  3. TIGECYCLINE [Suspect]
     Active Substance: TIGECYCLINE
     Indication: Cholecystitis acute
     Dosage: 100MG LOADING DOSE
     Route: 065
  4. TIGECYCLINE [Suspect]
     Active Substance: TIGECYCLINE
     Dosage: 50 MILLIGRAM
     Route: 065
  5. ERAVACYCLINE [Suspect]
     Active Substance: ERAVACYCLINE
     Indication: Enterobacter infection
     Dosage: 1 MILLIGRAM/KILOGRAM, EVERY 12 HRS
     Route: 065
  6. CEFIDEROCOL [Suspect]
     Active Substance: CEFIDEROCOL
     Indication: Enterobacter infection
     Dosage: LOADING DOSE
     Route: 065
  7. CEFIDEROCOL [Suspect]
     Active Substance: CEFIDEROCOL
     Dosage: VIA CONTINUOUS INFUSION
     Route: 065
  8. ANIDULAFUNGIN [Suspect]
     Active Substance: ANIDULAFUNGIN
     Indication: Candida infection
     Dosage: ON DAY 1
     Route: 065
  9. ANIDULAFUNGIN [Suspect]
     Active Substance: ANIDULAFUNGIN
     Dosage: 100 MILLIGRAM 24 HOURS
     Route: 065
  10. PIPERACILLIN SODIUM\TAZOBACTAM SODIUM [Concomitant]
     Active Substance: PIPERACILLIN SODIUM\TAZOBACTAM SODIUM
     Indication: Cholecystitis
     Dosage: 4.5 /~18 G
     Route: 065
  11. PIPERACILLIN SODIUM\TAZOBACTAM SODIUM [Concomitant]
     Active Substance: PIPERACILLIN SODIUM\TAZOBACTAM SODIUM
     Indication: Liver abscess

REACTIONS (2)
  - Hepatic failure [Fatal]
  - Condition aggravated [Fatal]
